FAERS Safety Report 13607503 (Version 3)
Quarter: 2017Q3

REPORT INFORMATION
  Report Type: Spontaneous
  Country: US (occurrence: US)
  Receive Date: 20170602
  Receipt Date: 20170711
  Transmission Date: 20171127
  Serious: No
  Sender: FDA-Public Use
  Company Number: US-GLAXOSMITHKLINE-US2017083742

PATIENT
  Age: 70 Year
  Sex: Female

DRUGS (3)
  1. FLOVENT DISKUS [Suspect]
     Active Substance: FLUTICASONE PROPIONATE
     Dosage: 1 PUFF(S), BID
     Route: 055
  2. FLOVENT DISKUS [Suspect]
     Active Substance: FLUTICASONE PROPIONATE
     Indication: ASTHMA
     Dosage: 100 UG
     Route: 055
     Dates: start: 2016
  3. VENTOLIN [Concomitant]
     Active Substance: ALBUTEROL SULFATE

REACTIONS (4)
  - Dyspnoea [Recovered/Resolved]
  - Drug ineffective [Recovered/Resolved]
  - Product quality issue [Unknown]
  - Dysphonia [Recovered/Resolved]

NARRATIVE: CASE EVENT DATE: 201704
